FAERS Safety Report 5357073-1 (Version None)
Quarter: 2007Q2

REPORT INFORMATION
  Report Type: 
  Country: None (occurrence: None)
  Receive Date: 20070614
  Receipt Date: 20070608
  Transmission Date: 20071010
  Serious: Yes (Death)
  Sender: FDA-Public Use
  Company Number: AU-AVENTIS-200714806GDDC

PATIENT
  Age: 66 Year
  Sex: Female

DRUGS (3)
  1. ARAVA [Suspect]
     Indication: RHEUMATOID ARTHRITIS
     Route: 048
     Dates: start: 20061027
  2. METHOTREXATE [Concomitant]
  3. PREDNISONE TAB [Concomitant]
     Dosage: DOSE: 10-15

REACTIONS (3)
  - DEATH [None]
  - LUNG INFECTION [None]
  - RHEUMATOID LUNG [None]
